FAERS Safety Report 18210156 (Version 1)
Quarter: 2020Q3

REPORT INFORMATION
  Report Type: Spontaneous
  Country: US (occurrence: US)
  Receive Date: 20200829
  Receipt Date: 20200829
  Transmission Date: 20201103
  Serious: Yes (Hospitalization)
  Sender: FDA-Public Use
  Company Number: US-AJANTA PHARMA USA INC.-2089179

PATIENT
  Age: 66 Year
  Sex: Female

DRUGS (3)
  1. BOSENTAN. [Concomitant]
     Active Substance: BOSENTAN
  2. SILDENAFIL (ANDA 210394) [Suspect]
     Active Substance: SILDENAFIL CITRATE
  3. UPTRAVI [Concomitant]
     Active Substance: SELEXIPAG

REACTIONS (1)
  - Paraesthesia [Unknown]

NARRATIVE: CASE EVENT DATE: 202006
